FAERS Safety Report 4829200-3 (Version None)
Quarter: 2005Q4

REPORT INFORMATION
  Report Type: 
  Country: None (occurrence: None)
  Receive Date: 20051027
  Receipt Date: 20050721
  Transmission Date: 20060501
  Serious: Yes (Hospitalization, Other)
  Sender: FDA-Public Use
  Company Number: ZICO001244

PATIENT
  Age: 35 Year
  Sex: Female

DRUGS (3)
  1. PRIALT [Suspect]
     Indication: PAIN
     Dosage: 0.071 MCG/HR INTRATHECAL
     Route: 037
     Dates: start: 20050101, end: 20050101
  2. MARCAINE [Concomitant]
  3. BACLOFEN [Concomitant]

REACTIONS (1)
  - PSYCHOTIC DISORDER [None]
